FAERS Safety Report 22218058 (Version 1)
Quarter: 2023Q2

REPORT INFORMATION
  Report Type: Spontaneous
  Country: CO (occurrence: CO)
  Receive Date: 20230417
  Receipt Date: 20230417
  Transmission Date: 20230721
  Serious: Yes (Hospitalization)
  Sender: FDA-Public Use
  Company Number: CO-AMICUS THERAPEUTICS, INC.-AMI_2261

PATIENT
  Age: 45 Year
  Sex: Female
  Weight: 72 kg

DRUGS (4)
  1. GALAFOLD [Suspect]
     Active Substance: MIGALASTAT HYDROCHLORIDE
     Indication: Fabry^s disease
     Dosage: 123 MILLIGRAM, QOD
     Route: 048
     Dates: start: 20230118, end: 20230221
  2. GALAFOLD [Suspect]
     Active Substance: MIGALASTAT HYDROCHLORIDE
     Dosage: 123 MILLIGRAM, QOD
     Route: 048
     Dates: start: 20230305
  3. EMPAGLIFLOZIN\METFORMIN HYDROCHLORIDE [Suspect]
     Active Substance: EMPAGLIFLOZIN\METFORMIN HYDROCHLORIDE
     Indication: Type 2 diabetes mellitus
     Dosage: UNK
     Route: 065
  4. EMPAGLIFLOZIN\METFORMIN HYDROCHLORIDE [Suspect]
     Active Substance: EMPAGLIFLOZIN\METFORMIN HYDROCHLORIDE
     Dosage: 12.5 +1000 MILLIGRAM, Q12H
     Route: 048
     Dates: start: 20230109, end: 20230221

REACTIONS (6)
  - Vomiting [Unknown]
  - Muscle strength abnormal [Unknown]
  - Blood glucose increased [Unknown]
  - Cystitis interstitial [Recovering/Resolving]
  - Dyspareunia [Recovering/Resolving]
  - Constipation [Unknown]

NARRATIVE: CASE EVENT DATE: 20230101
